FAERS Safety Report 11569652 (Version 1)
Quarter: 2015Q3

REPORT INFORMATION
  Report Type: Spontaneous
  Country: US (occurrence: None)
  Receive Date: 20150928
  Receipt Date: 20150928
  Transmission Date: 20151125
  Serious: Yes (Hospitalization)
  Sender: FDA-Public Use
  Company Number: None

PATIENT
  Age: 15 Year
  Sex: Male
  Weight: 106 kg

DRUGS (2)
  1. LAMOTRIGINE. [Suspect]
     Active Substance: LAMOTRIGINE
     Dosage: APROXIMATELY 1-2 MONTYS
  2. VALPROIC ACID. [Concomitant]
     Active Substance: VALPROIC ACID

REACTIONS (7)
  - Rash generalised [None]
  - Dysarthria [None]
  - Shock [None]
  - Pyrexia [None]
  - Drug reaction with eosinophilia and systemic symptoms [None]
  - Mental status changes [None]
  - Asthenia [None]

NARRATIVE: CASE EVENT DATE: 20150212
